FAERS Safety Report 20516531 (Version 2)
Quarter: 2022Q1

REPORT INFORMATION
  Report Type: Report from Study
  Country: US (occurrence: US)
  Receive Date: 20220225
  Receipt Date: 20220308
  Transmission Date: 20220423
  Serious: Yes (Hospitalization, Other)
  Sender: FDA-Public Use
  Company Number: US-ABBVIE-22K-163-4249789-00

PATIENT
  Age: 65 Year
  Sex: Female

DRUGS (5)
  1. IMBRUVICA [Suspect]
     Active Substance: IBRUTINIB
     Indication: Chronic lymphocytic leukaemia
     Route: 048
     Dates: start: 20210701
  2. IMBRUVICA [Suspect]
     Active Substance: IBRUTINIB
     Route: 048
  3. MODERNA COVID-19 VACCINE [Concomitant]
     Active Substance: ELASOMERAN
     Indication: COVID-19 immunisation
     Dosage: 1ST DOSE
     Route: 030
  4. MODERNA COVID-19 VACCINE [Concomitant]
     Active Substance: ELASOMERAN
     Dosage: 2ND DOSE
     Route: 030
  5. MODERNA COVID-19 VACCINE [Concomitant]
     Active Substance: ELASOMERAN
     Dosage: 3RD DOSE BOOSTER
     Route: 030

REACTIONS (8)
  - Thyroidectomy [Unknown]
  - Surgery [Recovering/Resolving]
  - Furuncle [Not Recovered/Not Resolved]
  - Panic attack [Recovered/Resolved]
  - Rash [Not Recovered/Not Resolved]
  - Anxiety [Recovered/Resolved]
  - Diarrhoea [Recovered/Resolved]
  - Epistaxis [Recovered/Resolved]

NARRATIVE: CASE EVENT DATE: 20210701
